FAERS Safety Report 14773353 (Version 1)
Quarter: 2018Q2

REPORT INFORMATION
  Report Type: Spontaneous
  Country: US (occurrence: US)
  Receive Date: 20180418
  Receipt Date: 20180418
  Transmission Date: 20180711
  Serious: Yes (Hospitalization)
  Sender: FDA-Public Use
  Company Number: US-BEH-2018089731

PATIENT
  Age: 81 Year
  Sex: Male
  Weight: 81.63 kg

DRUGS (18)
  1. MEDROL [Concomitant]
     Active Substance: METHYLPREDNISOLONE
  2. LEVAQUIN [Concomitant]
     Active Substance: LEVOFLOXACIN
  3. LEVOTHYROXINE. [Concomitant]
     Active Substance: LEVOTHYROXINE
  4. ACETAMINOPHEN. [Concomitant]
     Active Substance: ACETAMINOPHEN
  5. PRAVASTATIN. [Concomitant]
     Active Substance: PRAVASTATIN
  6. HIZENTRA [Suspect]
     Active Substance: HUMAN IMMUNOGLOBULIN G
     Indication: HYPOGAMMAGLOBULINAEMIA
     Dosage: 8 G, QW
     Route: 058
     Dates: start: 20170112
  7. BUPROPION. [Concomitant]
     Active Substance: BUPROPION
  8. PERFOROMIST [Concomitant]
     Active Substance: FORMOTEROL FUMARATE DIHYDRATE
  9. ASPIRIN. [Concomitant]
     Active Substance: ASPIRIN
  10. EPINEPHRINE. [Concomitant]
     Active Substance: EPINEPHRINE
  11. VENTOLIN [Concomitant]
     Active Substance: ALBUTEROL SULFATE
  12. MULTIVITAMINS [Concomitant]
     Active Substance: VITAMINS
  13. HIZENTRA [Suspect]
     Active Substance: HUMAN IMMUNOGLOBULIN G
     Dosage: UNK
     Route: 058
  14. LIDOCAINE. [Concomitant]
     Active Substance: LIDOCAINE
  15. PREDNISONE. [Concomitant]
     Active Substance: PREDNISONE
  16. BUDESONIDE. [Concomitant]
     Active Substance: BUDESONIDE
  17. CARDIZEM [Concomitant]
     Active Substance: DILTIAZEM HYDROCHLORIDE
  18. SINGULAIR [Concomitant]
     Active Substance: MONTELUKAST SODIUM

REACTIONS (1)
  - Bladder cancer [Unknown]

NARRATIVE: CASE EVENT DATE: 20180316
